FAERS Safety Report 12583427 (Version 1)
Quarter: 2016Q3

REPORT INFORMATION
  Report Type: Spontaneous
  Country: US (occurrence: US)
  Receive Date: 20160722
  Receipt Date: 20160722
  Transmission Date: 20161109
  Serious: No
  Sender: FDA-Public Use
  Company Number: US-EMERGENT BIOSOLUTIONS-16BA00099SP

PATIENT
  Age: 53 Year
  Sex: Male
  Weight: 61 kg

DRUGS (13)
  1. DOCUSATE [Concomitant]
     Active Substance: DOCUSATE
     Dosage: 200 MG, BID
     Route: 048
     Dates: start: 20160628, end: 20160701
  2. SENNA [Concomitant]
     Active Substance: SENNA LEAF\SENNOSIDES\SENNOSIDES A AND B
     Dosage: 8.6 MG, SINGLE
     Route: 048
     Dates: start: 20160629, end: 20160629
  3. ENOXAPARIN [Concomitant]
     Active Substance: ENOXAPARIN
     Dosage: 40 MG, QD
     Route: 058
     Dates: start: 20160627, end: 20160701
  4. NICOTINE. [Concomitant]
     Active Substance: NICOTINE
     Dosage: 7 MG, SINGLE
     Route: 061
     Dates: start: 20160629, end: 20160629
  5. METHADONE [Concomitant]
     Active Substance: METHADONE HYDROCHLORIDE
     Dosage: 20 MG, BID
     Route: 048
     Dates: start: 20160627, end: 20160701
  6. PENICILLIN G [Concomitant]
     Active Substance: PENICILLIN G
     Dosage: 5 UNK, SINGLE
     Route: 042
     Dates: start: 20160625, end: 20160625
  7. KETOROLAC [Concomitant]
     Active Substance: KETOROLAC\KETOROLAC TROMETHAMINE
     Dosage: 30 MG, Q6H
     Route: 042
     Dates: start: 20160628, end: 20160701
  8. MAGNESIUM [Concomitant]
     Active Substance: MAGNESIUM
     Dosage: 4 G, SINGLE
     Route: 042
     Dates: start: 20160628, end: 20160628
  9. CYANOCOBALAMIN. [Concomitant]
     Active Substance: CYANOCOBALAMIN
     Dosage: 1000 ?G, QD
     Route: 048
     Dates: start: 20160627, end: 20160701
  10. PANTOPRAZOLE [Concomitant]
     Active Substance: PANTOPRAZOLE SODIUM
     Dosage: 40 MG, UNK
     Route: 048
     Dates: start: 20160628, end: 20160701
  11. ATIVAN [Concomitant]
     Active Substance: LORAZEPAM
     Dosage: 1 MG, SINGLE
     Route: 048
     Dates: start: 20160625, end: 20160625
  12. ZOFRAN [Concomitant]
     Active Substance: ONDANSETRON HYDROCHLORIDE
     Dosage: 4 MG, SINGLE
     Route: 060
     Dates: start: 20160625, end: 20160625
  13. BAT [Suspect]
     Active Substance: EQUINE BOTULINUM NEUROTOXIN A/B/C/D/E/F/G IMMUNE FAB2
     Indication: BOTULISM
     Dosage: 180 ML, SINGLE
     Route: 042
     Dates: start: 20160625, end: 20160626

REACTIONS (2)
  - Bradycardia [Recovered/Resolved]
  - Blood pressure fluctuation [Recovered/Resolved]

NARRATIVE: CASE EVENT DATE: 20160628
